FAERS Safety Report 10177263 (Version 1)
Quarter: 2014Q2

REPORT INFORMATION
  Report Type: Spontaneous
  Country: US (occurrence: US)
  Receive Date: 20140516
  Receipt Date: 20140516
  Transmission Date: 20141212
  Serious: Yes (Hospitalization)
  Sender: FDA-Public Use
  Company Number: US-GLAXOSMITHKLINE-A1073374A

PATIENT
  Age: 61 Year
  Sex: Female

DRUGS (4)
  1. VENTOLIN [Suspect]
     Indication: CHRONIC OBSTRUCTIVE PULMONARY DISEASE
     Dosage: 2PUFF AS REQUIRED
     Route: 055
     Dates: start: 2004
  2. SYMBICORT [Concomitant]
  3. IPRATROPIUM [Concomitant]
  4. NEBULIZER [Concomitant]

REACTIONS (5)
  - Cardiac arrest [Unknown]
  - Resuscitation [Unknown]
  - Oxygen saturation decreased [Unknown]
  - Catheterisation cardiac [Unknown]
  - Dyspnoea [Unknown]
